FAERS Safety Report 13442058 (Version 1)
Quarter: 2017Q2

REPORT INFORMATION
  Report Type: Spontaneous
  Country: IT (occurrence: IT)
  Receive Date: 20170413
  Receipt Date: 20170413
  Transmission Date: 20170830
  Serious: Yes (Life-Threatening)
  Sender: FDA-Public Use
  Company Number: IT-ASTRAZENECA-2017SE36013

PATIENT
  Age: 28090 Day
  Sex: Male

DRUGS (3)
  1. VANCOMYCIN [Concomitant]
     Active Substance: VANCOMYCIN
  2. CARDIOASPIRIN [Concomitant]
     Active Substance: ASPIRIN
     Dates: start: 20170403
  3. BRILIQUE [Suspect]
     Active Substance: TICAGRELOR
     Indication: TRANSMYOCARDIAL REVASCULARISATION
     Route: 048
     Dates: start: 20170403, end: 20170405

REACTIONS (2)
  - Bradycardia [Recovered/Resolved]
  - Cardiac arrest [Recovered/Resolved]

NARRATIVE: CASE EVENT DATE: 20170405
